FAERS Safety Report 4561520-2 (Version None)
Quarter: 2005Q1

REPORT INFORMATION
  Report Type: 
  Country: None (occurrence: None)
  Receive Date: 20050121
  Receipt Date: 20050105
  Transmission Date: 20050727
  Serious: Yes (Hospitalization, Other)
  Sender: FDA-Public Use
  Company Number: USA050187549

PATIENT
  Age: 64 Year
  Sex: Female

DRUGS (3)
  1. CECLOR [Suspect]
     Indication: PNEUMONIA
     Dates: start: 20040101, end: 20040201
  2. BLOOD PRESSURE MEDICATION [Concomitant]
  3. ASPIRIN [Concomitant]

REACTIONS (10)
  - DISEASE RECURRENCE [None]
  - DIZZINESS [None]
  - DYSPNOEA [None]
  - LOSS OF CONSCIOUSNESS [None]
  - MENTAL IMPAIRMENT [None]
  - MENTAL STATUS CHANGES [None]
  - PNEUMONIA [None]
  - RESPIRATORY DISTRESS [None]
  - SPEECH DISORDER [None]
  - VOMITING [None]
